FAERS Safety Report 14764255 (Version 1)
Quarter: 2018Q2

REPORT INFORMATION
  Report Type: Spontaneous
  Country: PL (occurrence: PL)
  Receive Date: 20180416
  Receipt Date: 20180416
  Transmission Date: 20180711
  Serious: Yes (Hospitalization, Other)
  Sender: FDA-Public Use
  Company Number: PHHY2017PL101604

PATIENT
  Age: 62 Year
  Sex: Female

DRUGS (4)
  1. ZOLPIDEM [Suspect]
     Active Substance: ZOLPIDEM\ZOLPIDEM TARTRATE
     Indication: INSOMNIA
     Dosage: 10 MG, QD, BEFORE SLEEP
     Route: 065
  2. VENLAFAXINE [Suspect]
     Active Substance: VENLAFAXINE HYDROCHLORIDE
     Indication: DEPRESSION
     Dosage: 150 MG, QD, MORNING
     Route: 065
  3. MOCLOBEMIDE [Suspect]
     Active Substance: MOCLOBEMIDE
     Indication: DEPRESSION
     Dosage: 150 MG, QD, AFTERNOON
     Route: 065
  4. SERTRALINE [Suspect]
     Active Substance: SERTRALINE HYDROCHLORIDE
     Indication: DEPRESSION
     Dosage: 50 MG, QD, EVENING
     Route: 065

REACTIONS (10)
  - Syncope [Recovered/Resolved]
  - Atrial tachycardia [Recovered/Resolved]
  - Tachycardia [Not Recovered/Not Resolved]
  - Fatigue [Recovered/Resolved]
  - Drug interaction [Recovering/Resolving]
  - Fatigue [Unknown]
  - Insomnia [Recovered/Resolved]
  - Arrhythmia [Recovering/Resolving]
  - Palpitations [Recovered/Resolved]
  - Drug ineffective [Recovered/Resolved]
